FAERS Safety Report 22612681 (Version 1)
Quarter: 2023Q2

REPORT INFORMATION
  Report Type: Spontaneous
  Country: US (occurrence: US)
  Receive Date: 20230617
  Receipt Date: 20230617
  Transmission Date: 20230721
  Serious: No
  Sender: FDA-Public Use
  Company Number: US-GLENMARK PHARMACEUTICALS-2023GMK078476

PATIENT

DRUGS (1)
  1. MOMETASONE FUROATE [Suspect]
     Active Substance: MOMETASONE FUROATE
     Indication: Eczema
     Dosage: UNK, (ROUTE: INSIDE THE EAR CANAL)
     Route: 001
     Dates: start: 202301

REACTIONS (3)
  - Application site erythema [Unknown]
  - Application site warmth [Unknown]
  - Application site pain [Unknown]

NARRATIVE: CASE EVENT DATE: 20230101
